FAERS Safety Report 5120388-6 (Version None)
Quarter: 2006Q4

REPORT INFORMATION
  Report Type: 
  Country: None (occurrence: None)
  Receive Date: 20061004
  Receipt Date: 20060901
  Transmission Date: 20070319
  Serious: Yes (Other)
  Sender: FDA-Public Use
  Company Number: CA-GLAXOSMITHKLINE-A0618960A

PATIENT
  Age: 75 Year
  Sex: Male

DRUGS (3)
  1. AVODART [Suspect]
     Indication: DRUG USE FOR UNKNOWN INDICATION
     Route: 048
     Dates: start: 20060810, end: 20060816
  2. LIPITOR [Concomitant]
  3. HYZAAR [Concomitant]

REACTIONS (2)
  - ORAL PAIN [None]
  - SWOLLEN TONGUE [None]
